FAERS Safety Report 6244327-X (Version None)
Quarter: 2009Q2

REPORT INFORMATION
  Report Type: 
  Country: None (occurrence: None)
  Receive Date: 20090625
  Receipt Date: 20090617
  Transmission Date: 20091009
  Serious: Yes (Death)
  Sender: FDA-Public Use
  Company Number: BR-ROCHE-638894

PATIENT
  Sex: Female
  Weight: 51.7 kg

DRUGS (5)
  1. PEG-INTERFERON ALFA 2A (RO 25-8310) [Suspect]
     Indication: HEPATITIS C
     Route: 058
     Dates: start: 20081009
  2. RIBAVIRIN [Suspect]
     Indication: HEPATITIS C
     Route: 048
     Dates: start: 20081009
  3. EPOGEN [Suspect]
     Dosage: DOSE REPORTED AS 20.000 UI; DRUG: ERITROPOYETINA
     Route: 058
     Dates: start: 20090423
  4. PROPRANOLOL HYDROCHLORIDE [Concomitant]
     Indication: HYPERTENSION
     Route: 048
     Dates: start: 20030101
  5. LOSARTAN POTASSIUM [Concomitant]
     Indication: HYPERTENSION
     Route: 048
     Dates: start: 20030101

REACTIONS (2)
  - HAEMOLYTIC ANAEMIA [None]
  - HYPOXIC ENCEPHALOPATHY [None]
